FAERS Safety Report 26034296 (Version 1)
Quarter: 2025Q4

REPORT INFORMATION
  Report Type: Spontaneous
  Country: US (occurrence: None)
  Receive Date: 20251112
  Receipt Date: 20251112
  Transmission Date: 20260118
  Serious: No
  Sender: FDA-CTU
  Company Number: None

PATIENT
  Age: 71 Year
  Sex: Male
  Weight: 86 kg

DRUGS (2)
  1. CASODEX [Suspect]
     Active Substance: BICALUTAMIDE
     Dates: end: 20150724
  2. ZOLADEX [Suspect]
     Active Substance: GOSERELIN ACETATE
     Dates: end: 20150626

REACTIONS (3)
  - Vertigo [None]
  - Presyncope [None]
  - Supraventricular tachycardia [None]

NARRATIVE: CASE EVENT DATE: 20241214
